FAERS Safety Report 11345150 (Version 1)
Quarter: 2015Q3

REPORT INFORMATION
  Report Type: Report from Study
  Country: US (occurrence: US)
  Receive Date: 20150806
  Receipt Date: 20150806
  Transmission Date: 20151125
  Serious: Yes (Other)
  Sender: FDA-Public Use
  Company Number: US-GILEAD-2015-0164971

PATIENT
  Age: 73 Year
  Sex: Male

DRUGS (13)
  1. SIMVASTATIN. [Concomitant]
     Active Substance: SIMVASTATIN
  2. COENZYME Q10 [Concomitant]
     Active Substance: UBIDECARENONE
  3. ZYRTEC [Concomitant]
     Active Substance: CETIRIZINE HYDROCHLORIDE
  4. DULERA [Concomitant]
     Active Substance: FORMOTEROL FUMARATE DIHYDRATE\MOMETASONE FUROATE
  5. PROAIR HFA [Concomitant]
     Active Substance: ALBUTEROL SULFATE
  6. METOPROLOL [Concomitant]
     Active Substance: METOPROLOL
  7. OMEGA-3 FATTY ACIDS [Concomitant]
     Active Substance: OMEGA-3 FATTY ACIDS
  8. ASPIRIN                            /00002701/ [Concomitant]
     Active Substance: ASPIRIN
  9. ORENITRAM [Suspect]
     Active Substance: TREPROSTINIL
     Indication: PRODUCT USED FOR UNKNOWN INDICATION
     Dosage: UNK
     Route: 065
     Dates: start: 20150710
  10. FAMOTIDINE. [Concomitant]
     Active Substance: FAMOTIDINE
  11. AMBRISENTAN [Suspect]
     Active Substance: AMBRISENTAN
     Indication: PULMONARY ARTERIAL HYPERTENSION
     Dosage: 10 MG, QD
     Route: 065
     Dates: start: 20140227
  12. MVI                                /01825701/ [Concomitant]
     Active Substance: VITAMINS
  13. CLOPIDOGREL [Concomitant]
     Active Substance: CLOPIDOGREL BISULFATE

REACTIONS (8)
  - Muscle spasms [Unknown]
  - Dizziness [Unknown]
  - Nausea [Not Recovered/Not Resolved]
  - Hypotension [Not Recovered/Not Resolved]
  - Flushing [Not Recovered/Not Resolved]
  - Fatigue [Not Recovered/Not Resolved]
  - Pain in jaw [Unknown]
  - Hyperhidrosis [Unknown]

NARRATIVE: CASE EVENT DATE: 20150713
